FAERS Safety Report 6351923-8 (Version None)
Quarter: 2009Q3

REPORT INFORMATION
  Report Type: 
  Country: None (occurrence: None)
  Receive Date: 20090912
  Receipt Date: 20090622
  Transmission Date: 20100115
  Serious: No
  Sender: FDA-Public Use
  Company Number: US-ABBOTT-07P-163-0427582-00

PATIENT
  Sex: Female
  Weight: 52.21 kg

DRUGS (6)
  1. HUMIRA [Suspect]
     Indication: CROHN'S DISEASE
     Dosage: LOADING DOSE
     Route: 058
     Dates: start: 20071203
  2. SUMATRIPTAN SUCCINATE [Concomitant]
     Indication: MIGRAINE
  3. CIPROFLAXACIN [Concomitant]
     Indication: CROHN'S DISEASE
  4. METRONIDAZOLE [Concomitant]
     Indication: CROHN'S DISEASE
  5. TRIAMCINOLONE [Concomitant]
     Indication: DRUG USE FOR UNKNOWN INDICATION
  6. ANTIBIOTIC EYE DROPS [Concomitant]
     Indication: ULCERATIVE KERATITIS

REACTIONS (1)
  - INCORRECT DOSE ADMINISTERED [None]
